FAERS Safety Report 8308155 (Version 3)
Quarter: 2013Q2

REPORT INFORMATION
  Report Type: Report from Study
  Country: US (occurrence: US)
  Receive Date: 20111222
  Receipt Date: 20130510
  Transmission Date: 20140414
  Serious: Yes (Other)
  Sender: FDA-Public Use
  Company Number: US-ABBOTT-11P-163-0883480-00

PATIENT
  Age: 56 Year
  Sex: Female
  Weight: 61.29 kg

DRUGS (11)
  1. HUMIRA 40 MG/0.8 ML PEN [Suspect]
     Indication: CROHN^S DISEASE
     Route: 058
     Dates: start: 2010
  2. HUMIRA 40 MG/0.8 ML PEN [Suspect]
  3. HUMIRA 40 MG/0.8 ML PEN [Suspect]
  4. UNNAMED MEDICATION [Suspect]
     Indication: HEPATITIS C
     Route: 048
     Dates: start: 201111, end: 201202
  5. UNNAMED MEDICATION [Suspect]
     Indication: HEPATITIS C
  6. UNNAMED MEDICATION [Suspect]
     Indication: LIVER DISORDER
  7. PREMARIN [Concomitant]
     Indication: HORMONE REPLACEMENT THERAPY
  8. OMEPRAZOLE [Concomitant]
     Indication: GASTRIC DISORDER
  9. MULTIVITAMIN [Concomitant]
     Indication: VITAMIN SUPPLEMENTATION
  10. AMBIEN [Concomitant]
     Indication: SLEEP DISORDER THERAPY
  11. VITAMIN D [Concomitant]
     Indication: VITAMIN SUPPLEMENTATION

REACTIONS (18)
  - Pyrexia [Recovered/Resolved]
  - Headache [Recovered/Resolved]
  - Laboratory test abnormal [Recovered/Resolved]
  - Liver disorder [Not Recovered/Not Resolved]
  - Hepatitis C [Not Recovered/Not Resolved]
  - Fatigue [Recovering/Resolving]
  - Crohn^s disease [Not Recovered/Not Resolved]
  - Abdominal pain [Not Recovered/Not Resolved]
  - Diarrhoea [Not Recovered/Not Resolved]
  - Drug ineffective [Not Recovered/Not Resolved]
  - Rheumatoid arthritis [Not Recovered/Not Resolved]
  - Arthritis [Not Recovered/Not Resolved]
  - Drug dose omission [Not Recovered/Not Resolved]
  - Neuropathy peripheral [Not Recovered/Not Resolved]
  - Arthralgia [Not Recovered/Not Resolved]
  - Full blood count decreased [Recovered/Resolved]
  - Epistaxis [Recovered/Resolved]
  - Immunodeficiency [Unknown]
